FAERS Safety Report 10220725 (Version 1)
Quarter: 2014Q2

REPORT INFORMATION
  Report Type: Spontaneous
  Country: US (occurrence: US)
  Receive Date: 20140606
  Receipt Date: 20140606
  Transmission Date: 20141212
  Serious: No
  Sender: FDA-Public Use
  Company Number: US-PFIZER INC-2014155753

PATIENT
  Age: 55 Year
  Sex: Female
  Weight: 62.6 kg

DRUGS (2)
  1. LYRICA [Suspect]
     Indication: NEUROPATHY PERIPHERAL
     Dosage: 100 MG, 2X/DAY
     Dates: start: 2013, end: 20140411
  2. LYRICA [Suspect]
     Indication: POLYNEUROPATHY

REACTIONS (1)
  - Pain [Not Recovered/Not Resolved]
